FAERS Safety Report 9536478 (Version 1)
Quarter: 2013Q2

REPORT INFORMATION
  Report Type: Spontaneous
  Country: US (occurrence: None)
  Receive Date: 20130510
  Receipt Date: 20130510
  Transmission Date: 20140414
  Serious: No
  Sender: FDA-Public Use
  Company Number: US-011288

PATIENT
  Sex: 0

DRUGS (1)
  1. PICO-SALAX (NOT SPECIFIED) [Suspect]
     Indication: COLONOSCOPY

REACTIONS (2)
  - Abdominal rigidity [None]
  - Abdominal pain [None]
